FAERS Safety Report 23949643 (Version 1)
Quarter: 2024Q2

REPORT INFORMATION
  Report Type: Spontaneous
  Country: DK (occurrence: DK)
  Receive Date: 20240607
  Receipt Date: 20240607
  Transmission Date: 20240715
  Serious: Yes (Disabling)
  Sender: FDA-Public Use
  Company Number: DK-MYLANLABS-2024M1051348

PATIENT
  Sex: Female

DRUGS (1)
  1. LYRICA [Suspect]
     Active Substance: PREGABALIN
     Indication: Product used for unknown indication
     Dosage: UNK
     Route: 065

REACTIONS (1)
  - Illness [Unknown]
